FAERS Safety Report 5004708-9 (Version None)
Quarter: 2006Q2

REPORT INFORMATION
  Report Type: 
  Country: None (occurrence: None)
  Receive Date: 20060517
  Receipt Date: 20060508
  Transmission Date: 20061013
  Serious: Yes (Hospitalization)
  Sender: FDA-Public Use
  Company Number: US-ABBOTT-06P-163-0333046-00

PATIENT
  Age: 57 Year
  Sex: Male

DRUGS (3)
  1. SYNTHROID [Suspect]
     Indication: HYPOTHYROIDISM
     Route: 048
     Dates: end: 20060401
  2. SYNTHROID [Suspect]
     Dates: start: 20060401, end: 20060401
  3. SYNTHROID [Suspect]
     Dates: start: 20060401

REACTIONS (2)
  - BLOOD THYROID STIMULATING HORMONE INCREASED [None]
  - HODGKIN'S DISEASE [None]
